FAERS Safety Report 19327401 (Version 1)
Quarter: 2021Q2

REPORT INFORMATION
  Report Type: Spontaneous
  Country: US (occurrence: US)
  Receive Date: 20210528
  Receipt Date: 20210528
  Transmission Date: 20210717
  Serious: No
  Sender: FDA-Public Use
  Company Number: US-SA-2021SA176364

PATIENT
  Age: 67 Year
  Sex: Male

DRUGS (5)
  1. AUSTIN [Concomitant]
  2. AMLODIPINE [Concomitant]
     Active Substance: AMLODIPINE BESYLATE
  3. PANTOPRAZOLE [Concomitant]
     Active Substance: PANTOPRAZOLE
  4. DUPIXENT [Suspect]
     Active Substance: DUPILUMAB
     Indication: SEBORRHOEIC DERMATITIS
     Route: 058
     Dates: start: 20210217
  5. REPATHA [Concomitant]
     Active Substance: EVOLOCUMAB

REACTIONS (2)
  - Product dose omission issue [Unknown]
  - Skin haemorrhage [Unknown]

NARRATIVE: CASE EVENT DATE: 20210501
